FAERS Safety Report 23250819 (Version 2)
Quarter: 2023Q4

REPORT INFORMATION
  Report Type: Spontaneous
  Country: BE (occurrence: BE)
  Receive Date: 20231201
  Receipt Date: 20231218
  Transmission Date: 20240109
  Serious: Yes (Other)
  Sender: FDA-Public Use
  Company Number: BE-BAYER-2023A170795

PATIENT
  Age: 25 Year
  Sex: Female

DRUGS (2)
  1. LEVONORGESTREL [Suspect]
     Active Substance: LEVONORGESTREL
  2. IRON [Concomitant]
     Active Substance: IRON
     Route: 048

REACTIONS (3)
  - Medical device site calcification [None]
  - Lithiasis [None]
  - Abdominal pain [None]
